FAERS Safety Report 15446297 (Version 4)
Quarter: 2020Q2

REPORT INFORMATION
  Report Type: Report from Study
  Country: US (occurrence: US)
  Receive Date: 20180928
  Receipt Date: 20200417
  Transmission Date: 20200713
  Serious: Yes (Other)
  Sender: FDA-Public Use
  Company Number: PHEH2018US040141

PATIENT
  Sex: Female

DRUGS (1)
  1. GILENYA [Suspect]
     Active Substance: FINGOLIMOD HYDROCHLORIDE
     Indication: MULTIPLE SCLEROSIS
     Dosage: 0.5 MG, QD
     Route: 048
     Dates: start: 20180619

REACTIONS (4)
  - Multiple sclerosis [Not Recovered/Not Resolved]
  - Limb asymmetry [Unknown]
  - Scoliosis [Unknown]
  - Secondary progressive multiple sclerosis [Unknown]
